FAERS Safety Report 7502308-X (Version None)
Quarter: 2011Q2

REPORT INFORMATION
  Report Type: 
  Country: None (occurrence: None)
  Receive Date: 20110525
  Receipt Date: 20110425
  Transmission Date: 20111010
  Serious: No
  Sender: FDA-Public Use
  Company Number: US-BAYER-2011-037059

PATIENT
  Sex: Female

DRUGS (3)
  1. NOVA T [Suspect]
  2. YAZ [Suspect]
  3. MIRENA [Suspect]
     Indication: CONTRACEPTION
     Dosage: 20 MCG/24HR, CONT
     Route: 015

REACTIONS (2)
  - MIGRAINE [None]
  - POLLAKIURIA [None]
